FAERS Safety Report 16416109 (Version 1)
Quarter: 2019Q2

REPORT INFORMATION
  Report Type: Spontaneous
  Country: US (occurrence: US)
  Receive Date: 20190611
  Receipt Date: 20190611
  Transmission Date: 20190711
  Serious: No
  Sender: FDA-Public Use
  Company Number: US-RISING PHARMACEUTICALS, INC.-2018RIS00596

PATIENT
  Sex: Female

DRUGS (2)
  1. CEVIMELINE HYDROCHLORIDE. [Suspect]
     Active Substance: CEVIMELINE HYDROCHLORIDE
  2. CEVIMELINE (SUN PHARMACEUTICAL) [Suspect]
     Active Substance: CEVIMELINE

REACTIONS (2)
  - Fatigue [Not Recovered/Not Resolved]
  - Weight decreased [Unknown]
